FAERS Safety Report 16429750 (Version 3)
Quarter: 2019Q3

REPORT INFORMATION
  Report Type: Spontaneous
  Country: US (occurrence: US)
  Receive Date: 20190614
  Receipt Date: 20190806
  Transmission Date: 20191004
  Serious: No
  Sender: FDA-Public Use
  Company Number: PHEH2019US024747

PATIENT
  Sex: Female

DRUGS (1)
  1. PROMACTA [Suspect]
     Active Substance: ELTROMBOPAG OLAMINE
     Indication: HYPERLIPIDAEMIA
     Dosage: 75 MG, QD
     Route: 048
     Dates: start: 20190222

REACTIONS (6)
  - Diarrhoea [Unknown]
  - Product use in unapproved indication [Unknown]
  - Nasal congestion [Unknown]
  - Back pain [Unknown]
  - Decreased appetite [Unknown]
  - Dry mouth [Unknown]
